FAERS Safety Report 17839949 (Version 5)
Quarter: 2020Q3

REPORT INFORMATION
  Report Type: Report from Study
  Country: GB (occurrence: GB)
  Receive Date: 20200529
  Receipt Date: 20200824
  Transmission Date: 20201103
  Serious: Yes (Death, Hospitalization, Other)
  Sender: FDA-Public Use
  Company Number: GB-FERRINGPH-2019FE02230

PATIENT
  Age: 14 Year
  Sex: Female

DRUGS (2)
  1. SOMATROPIN. [Suspect]
     Active Substance: SOMATROPIN
     Indication: GROWTH HORMONE DEFICIENCY
     Dosage: 1.3 MG, 1 TIME DAILY
     Route: 058
     Dates: start: 20140602, end: 20200810
  2. SOMATROPIN. [Suspect]
     Active Substance: SOMATROPIN
     Dosage: 1.2 MG, 1 TIME DAILY AT NIGHT
     Route: 058
     Dates: start: 20140602

REACTIONS (10)
  - Asthenia [Unknown]
  - Swelling [Not Recovered/Not Resolved]
  - Lethargy [Unknown]
  - Cerebral cyst [Unknown]
  - Death [Fatal]
  - Intentional dose omission [Not Recovered/Not Resolved]
  - Off label use [Not Recovered/Not Resolved]
  - Tumour haemorrhage [Not Recovered/Not Resolved]
  - Contraindicated product prescribed [Not Recovered/Not Resolved]
  - Brain operation [Unknown]

NARRATIVE: CASE EVENT DATE: 20140602
